FAERS Safety Report 10779633 (Version 1)
Quarter: 2015Q1

REPORT INFORMATION
  Report Type: Spontaneous
  Country: ES (occurrence: None)
  Receive Date: 20150206
  Receipt Date: 20150206
  Transmission Date: 20150721
  Serious: Yes (Other)
  Sender: FDA-Public Use
  Company Number: NSR_01821_2015

PATIENT
  Age: 77 Year
  Sex: Female

DRUGS (2)
  1. METOCLOPRAMIDE (METOCLOPRAMIDE) [Suspect]
     Active Substance: METOCLOPRAMIDE
     Indication: VOMITING
     Dosage: 10 MG 1X/8 HOURS ORAL?
     Route: 048
  2. LINEZOLID (LINEZOLID) [Suspect]
     Active Substance: LINEZOLID
     Indication: RENAL IMPAIRMENT
     Dosage: 600 MG, 1X/12 HOURS INTRAVENOUS (NOT OTHERWISE SPECIFIED)??
     Route: 042

REACTIONS (2)
  - Drug interaction [None]
  - Serotonin syndrome [None]
